FAERS Safety Report 10672988 (Version 1)
Quarter: 2014Q4

REPORT INFORMATION
  Report Type: Spontaneous
  Country: US (occurrence: US)
  Receive Date: 20141223
  Receipt Date: 20141223
  Transmission Date: 20150529
  Serious: No
  Sender: FDA-Public Use
  Company Number: US-GILEAD-2014-0128826

PATIENT
  Age: 53 Year
  Sex: Female

DRUGS (3)
  1. VELETRI [Concomitant]
     Active Substance: EPOPROSTENOL
  2. ADEMPAS [Concomitant]
     Active Substance: RIOCIGUAT
  3. LETAIRIS [Suspect]
     Active Substance: AMBRISENTAN
     Indication: PRODUCT USED FOR UNKNOWN INDICATION
     Dosage: 10 MG, QD
     Route: 065
     Dates: start: 20140206

REACTIONS (7)
  - Catheter site erythema [Unknown]
  - Headache [Unknown]
  - Catheter site exfoliation [Unknown]
  - Pain [Unknown]
  - Diarrhoea [Unknown]
  - Chest pain [Unknown]
  - Pain in jaw [Unknown]
